FAERS Safety Report 5325898-4 (Version None)
Quarter: 2007Q2

REPORT INFORMATION
  Report Type: 
  Country: None (occurrence: None)
  Receive Date: 20070516
  Receipt Date: 20070509
  Transmission Date: 20071010
  Serious: Yes (Other)
  Sender: FDA-Public Use
  Company Number: CH-BRACCO-BRO-011697

PATIENT
  Sex: Male

DRUGS (1)
  1. PROHANCE [Suspect]
     Route: 042
     Dates: start: 20060828, end: 20060828

REACTIONS (1)
  - SKIN DEPIGMENTATION [None]
